FAERS Safety Report 18340646 (Version 2)
Quarter: 2020Q4

REPORT INFORMATION
  Report Type: Spontaneous
  Country: US (occurrence: US)
  Receive Date: 20201002
  Receipt Date: 20201210
  Transmission Date: 20210113
  Serious: Yes (Other)
  Sender: FDA-Public Use
  Company Number: US-PURDUE-USA-2020-0166927

PATIENT
  Sex: Female

DRUGS (1)
  1. OXYCONTIN [Suspect]
     Active Substance: OXYCODONE HYDROCHLORIDE
     Indication: PRODUCT USED FOR UNKNOWN INDICATION
     Dosage: UNK
     Route: 048
     Dates: start: 1995, end: 2019

REACTIONS (15)
  - Depression [Unknown]
  - Emotional distress [Unknown]
  - Drug withdrawal syndrome [Unknown]
  - Dyskinesia [Unknown]
  - Drug dependence [Unknown]
  - Mental disorder [Unknown]
  - Hallucination [Unknown]
  - Renal disorder [Unknown]
  - Tardive dyskinesia [Unknown]
  - Pain [Unknown]
  - Fatigue [Unknown]
  - Affect lability [Unknown]
  - Adverse drug reaction [Unknown]
  - Gastrointestinal disorder [Unknown]
  - Anxiety [Unknown]
